FAERS Safety Report 7491067-5 (Version None)
Quarter: 2011Q2

REPORT INFORMATION
  Report Type: 
  Country: None (occurrence: None)
  Receive Date: 20110519
  Receipt Date: 20110510
  Transmission Date: 20111010
  Serious: Yes (Death, Hospitalization, Other)
  Sender: FDA-Public Use
  Company Number: JP-ROCHE-750517

PATIENT
  Sex: Female
  Weight: 59 kg

DRUGS (6)
  1. AMARYL [Concomitant]
     Route: 048
  2. GLAKAY [Concomitant]
     Route: 048
  3. ACTEMRA [Suspect]
     Indication: RHEUMATOID ARTHRITIS
     Route: 041
     Dates: start: 20101025, end: 20101204
  4. PREDNISOLONE [Suspect]
     Indication: RHEUMATOID ARTHRITIS
     Route: 048
  5. ONEALFA [Concomitant]
     Route: 048
  6. ALLOPURINOL [Concomitant]
     Route: 048

REACTIONS (9)
  - MYOCARDITIS [None]
  - PULMONARY CONGESTION [None]
  - PNEUMONIA ASPIRATION [None]
  - SKIN ULCER [None]
  - ADRENAL ATROPHY [None]
  - SEPSIS [None]
  - CELLULITIS [None]
  - MARROW HYPERPLASIA [None]
  - SPLENIC INFECTION [None]
